FAERS Safety Report 8666570 (Version 2)
Quarter: 2013Q2

REPORT INFORMATION
  Report Type: Report from Study
  Country: CA (occurrence: US)
  Receive Date: 20120716
  Receipt Date: 20130624
  Transmission Date: 20140414
  Serious: Yes (Death, Hospitalization)
  Sender: FDA-Public Use
  Company Number: CA-CELGENEUS-163-21880-12063791

PATIENT
  Age: 77 Year
  Sex: Male
  Weight: 68.9 kg

DRUGS (10)
  1. REVLIMID [Suspect]
     Indication: PLASMA CELL MYELOMA
     Route: 048
     Dates: start: 20120406
  2. REVLIMID [Suspect]
     Route: 048
     Dates: start: 20120420
  3. DEXAMETHASONE [Suspect]
     Indication: PLASMA CELL MYELOMA
     Dosage: 40 MILLIGRAM
     Route: 048
     Dates: start: 20120406
  4. METOPROLOL [Concomitant]
     Indication: HEART RATE IRREGULAR
     Dosage: 25 MILLIGRAM
     Route: 048
  5. AMIODARONE [Concomitant]
     Indication: HEART RATE IRREGULAR
     Dosage: 200 MILLIGRAM
     Route: 048
  6. ACYCLOVIR [Concomitant]
     Indication: PRODUCT USED FOR UNKNOWN INDICATION
     Dosage: 400 MILLIGRAM
     Route: 048
  7. GABAPENTIN [Concomitant]
     Indication: PRODUCT USED FOR UNKNOWN INDICATION
     Dosage: 100 MILLIGRAM
     Route: 048
  8. SEVELAMER [Concomitant]
     Indication: PRODUCT USED FOR UNKNOWN INDICATION
     Dosage: 1.6 GRAM
     Route: 048
  9. COMBIGAN [Concomitant]
     Indication: PRODUCT USED FOR UNKNOWN INDICATION
     Dosage: BOTH EYES
     Route: 047
  10. LUMIGAN [Concomitant]
     Indication: PRODUCT USED FOR UNKNOWN INDICATION
     Dosage: BOTH EYES
     Route: 047

REACTIONS (4)
  - Multi-organ failure [Fatal]
  - Sepsis [Fatal]
  - Lung infection [Fatal]
  - Muscular weakness [Not Recovered/Not Resolved]
